FAERS Safety Report 23829712 (Version 3)
Quarter: 2024Q3

REPORT INFORMATION
  Report Type: Spontaneous
  Country: CA (occurrence: CA)
  Receive Date: 20240508
  Receipt Date: 20240912
  Transmission Date: 20241016
  Serious: Yes (Hospitalization, Other)
  Sender: GLAXOSMITHKLINE
  Company Number: CA-GLAXOSMITHKLINE-CA2024AMR056579

PATIENT

DRUGS (8)
  1. EPOPROSTENOL SODIUM [Suspect]
     Active Substance: EPOPROSTENOL SODIUM
     Indication: Pulmonary hypertension
     Dosage: UNK,4.5 UG/KG
     Route: 042
  2. EPOPROSTENOL SODIUM [Suspect]
     Active Substance: EPOPROSTENOL SODIUM
     Dosage: 28 ?G/KG, 1 EVERY 1 MINUTE, INJECTION
     Route: 042
  3. MACITENTAN [Suspect]
     Active Substance: MACITENTAN
     Indication: Pulmonary hypertension
     Dosage: 10 MG, QD
     Route: 048
  4. ADCIRCA [Concomitant]
     Active Substance: TADALAFIL
     Indication: Product used for unknown indication
     Dosage: UNK
  5. IMODIUM [Concomitant]
     Active Substance: LOPERAMIDE HYDROCHLORIDE
     Indication: Product used for unknown indication
     Dosage: UNK
  6. TYLENOL [Concomitant]
     Active Substance: ACETAMINOPHEN
     Indication: Product used for unknown indication
     Dosage: UNK
  7. WARFARIN [Concomitant]
     Active Substance: WARFARIN
     Indication: Product used for unknown indication
     Dosage: UNK
  8. FUROSEMIDE [Concomitant]
     Active Substance: FUROSEMIDE
     Indication: Product used for unknown indication
     Dosage: UNK

REACTIONS (10)
  - Catheter site erythema [Not Recovered/Not Resolved]
  - Catheter site infection [Not Recovered/Not Resolved]
  - Catheter site irritation [Not Recovered/Not Resolved]
  - Catheter site pain [Not Recovered/Not Resolved]
  - Dyspnoea [Not Recovered/Not Resolved]
  - Nasopharyngitis [Not Recovered/Not Resolved]
  - Pneumonia [Not Recovered/Not Resolved]
  - Musculoskeletal pain [Not Recovered/Not Resolved]
  - Surgery [Not Recovered/Not Resolved]
  - Swelling [Not Recovered/Not Resolved]
